FAERS Safety Report 4885325-8 (Version None)
Quarter: 2006Q1

REPORT INFORMATION
  Report Type: 
  Country: None (occurrence: None)
  Receive Date: 20060119
  Receipt Date: 20060111
  Transmission Date: 20060701
  Serious: Yes (Death)
  Sender: FDA-Public Use
  Company Number: PHHO2006AR00884

PATIENT
  Age: 48 Year
  Sex: Male

DRUGS (2)
  1. CHEMOTHERAPEUTICS,OTHER [Concomitant]
  2. ZELMAC / HTF 919A [Suspect]
     Route: 048
     Dates: start: 20041101

REACTIONS (2)
  - MALIGNANT NEOPLASM PROGRESSION [None]
  - METASTASES TO LIVER [None]
